FAERS Safety Report 5924201-6 (Version None)
Quarter: 2008Q4

REPORT INFORMATION
  Report Type: 
  Country: None (occurrence: None)
  Receive Date: 20081015
  Receipt Date: 20081006
  Transmission Date: 20090506
  Serious: Yes (Hospitalization, Disabling)
  Sender: FDA-Public Use
  Company Number: 2008SP020423

PATIENT
  Age: 41 Year
  Sex: Male

DRUGS (3)
  1. PEG-INTRON [Suspect]
     Indication: HEPATITIS C
     Dosage: SC
     Route: 058
     Dates: end: 20080101
  2. COPEGUS [Suspect]
     Indication: HEPATITIS C
     Dates: end: 20080101
  3. METHADONE HCL [Concomitant]

REACTIONS (6)
  - ALOPECIA [None]
  - PERIPHERAL COLDNESS [None]
  - RAYNAUD'S PHENOMENON [None]
  - SENSORY LOSS [None]
  - SKIN ULCER [None]
  - VISUAL ACUITY REDUCED [None]
